FAERS Safety Report 21361353 (Version 1)
Quarter: 2022Q3

REPORT INFORMATION
  Report Type: Report from Study
  Country: AU (occurrence: AU)
  Receive Date: 20220921
  Receipt Date: 20220921
  Transmission Date: 20221026
  Serious: Yes (Hospitalization)
  Sender: FDA-Public Use
  Company Number: AU-ABBVIE-18P-008-2605913-00

PATIENT
  Age: 8 Year
  Sex: Female

DRUGS (16)
  1. VENETOCLAX [Suspect]
     Active Substance: VENETOCLAX
     Indication: Recurrent cancer
     Route: 048
     Dates: start: 20180531, end: 20180531
  2. VENETOCLAX [Suspect]
     Active Substance: VENETOCLAX
     Indication: Recurrent cancer
     Route: 048
     Dates: start: 20180601, end: 20181225
  3. VENETOCLAX [Suspect]
     Active Substance: VENETOCLAX
     Indication: Recurrent cancer
     Route: 048
     Dates: start: 20181230
  4. CYCLOPHOSPHAMIDE [Suspect]
     Active Substance: CYCLOPHOSPHAMIDE
     Indication: Refractory cancer
     Dosage: PER DAY, MAXIMUM 5 DAYS EVERY 21 DAYS
     Route: 042
     Dates: start: 20180723
  5. TOPOTECAN HYDROCHLORIDE [Suspect]
     Active Substance: TOPOTECAN HYDROCHLORIDE
     Indication: Refractory cancer
     Dosage: PER DAY, MAXIMUM 5 DAYS EVERY 21 DAYS
     Route: 042
     Dates: start: 20180723
  6. OXYCODONE [Concomitant]
     Active Substance: OXYCODONE
     Indication: Pain management
     Dosage: TIME INTERVAL: AS NECESSARY: 2.25-4.5 MG
     Route: 048
     Dates: start: 20180508
  7. PEDIATRIC MULTIVITAMIN NO.106-IRON FUMARATE [Concomitant]
     Indication: Nutritional supplementation
     Route: 048
     Dates: start: 20180123
  8. ACETAMINOPHEN [Concomitant]
     Active Substance: ACETAMINOPHEN
     Indication: Analgesic therapy
     Dosage: TIME INTERVAL: AS NECESSARY
     Route: 042
     Dates: start: 20180531
  9. ONDANSETRON [Concomitant]
     Active Substance: ONDANSETRON
     Indication: Nausea
     Dosage: TIME INTERVAL: AS NECESSARY
     Route: 048
     Dates: start: 20180802
  10. LACTULOSE [Concomitant]
     Active Substance: LACTULOSE
     Indication: Constipation
     Dosage: TIME INTERVAL: AS NECESSARY
     Route: 048
     Dates: start: 20180728, end: 20180730
  11. IBUPROFEN [Concomitant]
     Active Substance: IBUPROFEN
     Indication: Pain
     Dosage: TIME INTERVAL: AS NECESSARY
     Route: 048
     Dates: start: 20190730
  12. BUTYLSCOPOLAMINE BROMIDE [Concomitant]
     Active Substance: BUTYLSCOPOLAMINE BROMIDE
     Indication: Abdominal pain
     Dosage: TIME INTERVAL: AS NECESSARY
     Route: 042
     Dates: start: 20181011
  13. BUTYLSCOPOLAMINE BROMIDE [Concomitant]
     Active Substance: BUTYLSCOPOLAMINE BROMIDE
     Indication: Abdominal pain
     Dosage: TIME INTERVAL: AS NECESSARY
     Route: 048
     Dates: start: 20181010
  14. Dextrose 5% with 0.45% normal saline [Concomitant]
     Indication: Prophylaxis
     Route: 042
     Dates: start: 20180530, end: 20180602
  15. glucose 5% wit 0.9%NS [Concomitant]
     Indication: Prophylaxis
     Route: 042
     Dates: start: 20180723, end: 20180727
  16. ALLOPURINOL [Concomitant]
     Active Substance: ALLOPURINOL
     Indication: Prophylaxis
     Dates: start: 20180530, end: 20180601

REACTIONS (1)
  - Febrile neutropenia [Recovered/Resolved]

NARRATIVE: CASE EVENT DATE: 20181227
